FAERS Safety Report 15431680 (Version 1)
Quarter: 2018Q3

REPORT INFORMATION
  Report Type: Report from Study
  Country: US (occurrence: US)
  Receive Date: 20180926
  Receipt Date: 20180926
  Transmission Date: 20181010
  Serious: No
  Sender: FDA-Public Use
  Company Number: US-TAKEDA-2018TUS004413

PATIENT
  Sex: Male

DRUGS (2)
  1. PONATINIB [Suspect]
     Active Substance: PONATINIB
     Dosage: 30 MG, QD
     Route: 048
  2. PONATINIB [Suspect]
     Active Substance: PONATINIB
     Indication: CHRONIC MYELOID LEUKAEMIA
     Dosage: 15 MG, QD
     Route: 048
     Dates: start: 20180131

REACTIONS (14)
  - Xerosis [Unknown]
  - Drug eruption [Recovering/Resolving]
  - Exfoliative rash [Unknown]
  - Protein total abnormal [Unknown]
  - Chest pain [Unknown]
  - White blood cell disorder [Unknown]
  - Dizziness [Unknown]
  - Asthenia [Unknown]
  - Dry skin [Unknown]
  - Palpitations [Unknown]
  - Insomnia [Unknown]
  - Platelet count abnormal [Unknown]
  - Anaemia [Unknown]
  - Constipation [Unknown]
